FAERS Safety Report 5014710-9 (Version None)
Quarter: 2006Q2

REPORT INFORMATION
  Report Type: 
  Country: None (occurrence: None)
  Receive Date: 20060531
  Receipt Date: 20060502
  Transmission Date: 20061013
  Serious: Yes (Other)
  Sender: FDA-Public Use
  Company Number: US-GLAXOSMITHKLINE-A0604088A

PATIENT
  Age: 10 Year
  Sex: Female
  Weight: 24.1 kg

DRUGS (3)
  1. LAMICTAL [Suspect]
     Indication: EPILEPSY
     Dosage: 2.5MG TWICE PER DAY
     Route: 048
     Dates: start: 20051115
  2. VALPROATE SODIUM [Concomitant]
     Dosage: 125MG TWICE PER DAY
     Route: 048
     Dates: start: 20000501
  3. KEPPRA [Concomitant]
     Dosage: 500MG TWICE PER DAY
     Route: 048
     Dates: start: 20020701, end: 20060308

REACTIONS (2)
  - CONVULSION [None]
  - DRUG LEVEL DECREASED [None]
